FAERS Safety Report 5004369-9 (Version None)
Quarter: 2006Q2

REPORT INFORMATION
  Report Type: 
  Country: None (occurrence: None)
  Receive Date: 20060517
  Receipt Date: 20060509
  Transmission Date: 20061013
  Serious: Yes (Other)
  Sender: FDA-Public Use
  Company Number: AU-GLAXOSMITHKLINE-B0424077A

PATIENT
  Sex: Male

DRUGS (5)
  1. AVANDIA [Suspect]
     Indication: DIABETES MELLITUS NON-INSULIN-DEPENDENT
     Dosage: 4MG UNKNOWN
     Route: 048
     Dates: start: 20060301
  2. ZOCOR [Concomitant]
  3. DIAMICRON [Concomitant]
  4. ATACAND [Concomitant]
  5. ACIMAX [Concomitant]

REACTIONS (4)
  - ANAEMIA [None]
  - LIVER FUNCTION TEST ABNORMAL [None]
  - RASH [None]
  - YELLOW SKIN [None]
